FAERS Safety Report 8777174 (Version 1)
Quarter: 2012Q4

REPORT INFORMATION
  Report Type: 
  Country: US (occurrence: US)
  Receive Date: 20120911
  Receipt Date: 20120911
  Transmission Date: 20130627
  Serious: No
  Sender: FDA-Public Use
  Company Number: US-009507513-1207USA004643

PATIENT

DRUGS (8)
  1. MAXALT [Suspect]
     Indication: MIGRAINE
     Dosage: UNK
     Route: 048
     Dates: end: 201203
  2. MAXALT [Suspect]
     Dosage: UNK, prn
     Route: 048
     Dates: start: 20120713
  3. LEVOTHROID [Concomitant]
     Dosage: 175 mg, qod
     Route: 048
  4. RELPAX [Concomitant]
     Dosage: 40 mg, Once
     Route: 048
  5. SYNTHROID [Concomitant]
     Dosage: 150 mg, UNK
  6. VITAMINS (UNSPECIFIED) [Concomitant]
  7. TYLENOL [Concomitant]
  8. CAFFEINE [Concomitant]

REACTIONS (6)
  - Tinea infection [Unknown]
  - Breast tenderness [Unknown]
  - Fatigue [Unknown]
  - Pruritus [Unknown]
  - Nausea [Unknown]
  - Exposure during pregnancy [Unknown]
